FAERS Safety Report 5657747-9 (Version None)
Quarter: 2008Q1

REPORT INFORMATION
  Report Type: 
  Country: None (occurrence: None)
  Receive Date: 20080310
  Receipt Date: 20080302
  Transmission Date: 20080703
  Serious: Yes (Hospitalization)
  Sender: FDA-Public Use
  Company Number: HU-BOEHRINGER INGELHEIM GMBH, GERMANY-2008-DE-01006DE

PATIENT
  Sex: Female
  Weight: 82 kg

DRUGS (6)
  1. PRAMIPEXOLE DIHYDROCHLORIDE [Suspect]
     Indication: PARKINSON'S DISEASE
     Route: 048
     Dates: start: 20071124, end: 20080130
  2. PRAMIPEXOLE DIHYDROCHLORIDE [Suspect]
     Route: 048
     Dates: start: 20080104
  3. STALEVO 100 [Concomitant]
     Indication: PARKINSON'S DISEASE
     Route: 048
     Dates: start: 20051003
  4. STALEVO 50 [Concomitant]
     Indication: PARKINSON'S DISEASE
     Route: 048
     Dates: start: 20070901
  5. PK MERZ [Concomitant]
     Indication: PARKINSON'S DISEASE
     Dates: start: 20070101
  6. AKINETON [Concomitant]
     Indication: PARKINSON'S DISEASE
     Route: 048
     Dates: start: 20070101

REACTIONS (6)
  - ANXIETY [None]
  - CONFUSIONAL STATE [None]
  - DISORIENTATION [None]
  - HALLUCINATION [None]
  - HALLUCINATION, VISUAL [None]
  - RESTLESSNESS [None]
